FAERS Safety Report 18662368 (Version 1)
Quarter: 2020Q4

REPORT INFORMATION
  Report Type: Spontaneous
  Country: FR (occurrence: FR)
  Receive Date: 20201224
  Receipt Date: 20201224
  Transmission Date: 20210114
  Serious: Yes (Other)
  Sender: FDA-Public Use
  Company Number: NVSC2020FR336320

PATIENT
  Age: 68 Year
  Sex: Female
  Weight: 68 kg

DRUGS (8)
  1. VITABACT [Suspect]
     Active Substance: PICLOXYDINE DIHYDROCHLORIDE
     Indication: PREOPERATIVE CARE
     Dosage: 13 DRP,QD (13 DROPS PER DAY, ON 30 DEC, 31 DEC, 01 JAN, 02 JAN AND 1 DROP IN THE MORNING UPON WAKING
     Route: 047
     Dates: start: 20161230, end: 20170103
  2. DESFLURANE PIRAMAL [Suspect]
     Active Substance: DESFLURANE
     Indication: GENERAL ANAESTHESIA
     Dosage: UNK
     Route: 065
     Dates: start: 20170103, end: 20170103
  3. MYDRIATICUM [Suspect]
     Active Substance: TROPICAMIDE
     Indication: CATARACT OPERATION
     Dosage: 1 DRP, PER 15 MIN (12 DROPS IN TOTAL)
     Route: 047
     Dates: start: 20170103, end: 20170103
  4. NEOSYNEPHRINE [Suspect]
     Active Substance: PHENYLEPHRINE HYDROCHLORIDE
     Indication: CATARACT OPERATION
     Dosage: 8 DRP,PER 15 MIN (8 DROPS IN TOTAL)
     Route: 047
     Dates: start: 20170103, end: 20170103
  5. PROPOFOL. [Suspect]
     Active Substance: PROPOFOL
     Indication: GENERAL ANAESTHESIA
     Dosage: UNK
     Route: 065
     Dates: start: 20170103, end: 20170103
  6. INDOCOLLYRE [Suspect]
     Active Substance: INDOMETHACIN
     Indication: PREOPERATIVE CARE
     Dosage: 13 DRP, QD (13 DROPS PER DAY, ON 30 DEC; 31 DEC; 01 JAN; 02 JAN; AND 1 DROP IN THE MORNING UPON WAKI
     Route: 047
     Dates: start: 20161230, end: 20170103
  7. SUFENTANIL [Suspect]
     Active Substance: SUFENTANIL
     Indication: GENERAL ANAESTHESIA
     Dosage: UNK
     Route: 065
     Dates: start: 20170103, end: 20170103
  8. RIVOTRIL [Concomitant]
     Active Substance: CLONAZEPAM
     Indication: PRODUCT USED FOR UNKNOWN INDICATION
     Dosage: 3 DRP, QD (THREE DROPS IN THE EVENING)
     Route: 048
     Dates: start: 20170103, end: 20170103

REACTIONS (6)
  - Weight decreased [Not Recovered/Not Resolved]
  - Off label use [Unknown]
  - Taste disorder [Not Recovered/Not Resolved]
  - Feeding disorder [Not Recovered/Not Resolved]
  - Incorrect route of product administration [Unknown]
  - Abdominal discomfort [Not Recovered/Not Resolved]

NARRATIVE: CASE EVENT DATE: 2017
